FAERS Safety Report 4393478-3 (Version None)
Quarter: 2004Q3

REPORT INFORMATION
  Report Type: 
  Country: None (occurrence: None)
  Receive Date: 20040707
  Receipt Date: 20040707
  Transmission Date: 20050211
  Serious: No
  Sender: FDA-Public Use
  Company Number: None

PATIENT
  Age: 36 Year
  Sex: Male
  Weight: 88.4514 kg

DRUGS (1)
  1. SUCCINYLCHOLINE 20 MG/ML ABBOTT (SEE IMAGE-PER ONSITE FDA REP) [Suspect]
     Dosage: 1-2 MG/KG IV
     Route: 042

REACTIONS (1)
  - DRUG EFFECT DECREASED [None]
